FAERS Safety Report 21177770 (Version 1)
Quarter: 2022Q3

REPORT INFORMATION
  Report Type: Spontaneous
  Country: US (occurrence: US)
  Receive Date: 20220805
  Receipt Date: 20220805
  Transmission Date: 20221027
  Serious: No
  Sender: FDA-Public Use
  Company Number: US-PFIZER INC-PV202200036250

PATIENT
  Age: 67 Year

DRUGS (1)
  1. METAXALONE [Suspect]
     Active Substance: METAXALONE
     Dosage: UNK

REACTIONS (2)
  - Gait disturbance [Unknown]
  - Pain [Unknown]
